FAERS Safety Report 18078162 (Version 1)
Quarter: 2020Q3

REPORT INFORMATION
  Report Type: Spontaneous
  Country: US (occurrence: US)
  Receive Date: 20200727
  Receipt Date: 20200727
  Transmission Date: 20201103
  Serious: No
  Sender: FDA-Public Use
  Company Number: None

PATIENT
  Age: 46 Year
  Sex: Female
  Weight: 69.44 kg

DRUGS (9)
  1. MEKTOVI [Suspect]
     Active Substance: BINIMETINIB
     Indication: RECTOSIGMOID CANCER
     Route: 048
     Dates: start: 20200203, end: 20200727
  2. TUMS [Concomitant]
     Active Substance: CALCIUM CARBONATE
  3. LISINOPRIL. [Concomitant]
     Active Substance: LISINOPRIL
  4. DOXYCYCLINE HYCLATE. [Concomitant]
     Active Substance: DOXYCYCLINE HYCLATE
  5. OXYCODONE HYDROCHLORIDE. [Concomitant]
     Active Substance: OXYCODONE HYDROCHLORIDE
  6. BRAFTOVI [Suspect]
     Active Substance: ENCORAFENIB
     Indication: RECTOSIGMOID CANCER
     Route: 048
     Dates: start: 20200203, end: 20200727
  7. ASPIRIN 325 MG [Concomitant]
     Active Substance: ASPIRIN
  8. PROCHLORPERAZINE MALEATE. [Concomitant]
     Active Substance: PROCHLORPERAZINE MALEATE
  9. DOCUSATE SODIUM. [Concomitant]
     Active Substance: DOCUSATE SODIUM

REACTIONS (1)
  - Disease progression [None]

NARRATIVE: CASE EVENT DATE: 20200727
